FAERS Safety Report 18559725 (Version 1)
Quarter: 2020Q4

REPORT INFORMATION
  Report Type: Spontaneous
  Country: SE (occurrence: SE)
  Receive Date: 20201130
  Receipt Date: 20201130
  Transmission Date: 20210114
  Serious: Yes (Other)
  Sender: FDA-Public Use
  Company Number: SE-TEVA-2020-SE-1853325

PATIENT
  Age: 51 Year
  Sex: Male

DRUGS (3)
  1. XANOR 0,25 MG TABLETT [Concomitant]
     Dosage: 1 TABLET IF NEEDED ORALLY
     Route: 048
  2. VENLAFAXINE [Suspect]
     Active Substance: VENLAFAXINE HYDROCHLORIDE
     Indication: ANXIETY
     Dosage: 225 MILLIGRAM DAILY;
     Route: 048
  3. CITODON 500 MG/30 MG TABLETT [Concomitant]
     Dosage: 1 TABLET IF NEEDED, MAXIMUM 8 TABLETS PER DAY ORALLY
     Route: 048

REACTIONS (4)
  - Micturition disorder [Unknown]
  - Accommodation disorder [Unknown]
  - Headache [Unknown]
  - Libido disorder [Unknown]

NARRATIVE: CASE EVENT DATE: 2020
